FAERS Safety Report 15603929 (Version 2)
Quarter: 2019Q3

REPORT INFORMATION
  Report Type: Spontaneous
  Country: JP (occurrence: JP)
  Receive Date: 20181109
  Receipt Date: 20190813
  Transmission Date: 20191004
  Serious: Yes (Death)
  Sender: FDA-Public Use
  Company Number: JP-ACTELION-A-US2018-181720

PATIENT
  Age: 75 Year
  Sex: Male
  Weight: 44 kg

DRUGS (9)
  1. VENTAVIS [Suspect]
     Active Substance: ILOPROST
     Indication: PULMONARY ARTERIAL HYPERTENSION
     Dosage: 30?/DAY, 6 ID
     Route: 055
     Dates: start: 201708, end: 20180630
  2. CARBOCISTEINE [Concomitant]
     Active Substance: CARBOCYSTEINE
  3. ZOLPIDEM [Concomitant]
     Active Substance: ZOLPIDEM TARTRATE
  4. PIMOBENDAN [Concomitant]
     Active Substance: PIMOBENDAN
  5. CLARITHROMYCIN. [Concomitant]
     Active Substance: CLARITHROMYCIN
  6. REBAMIPIDE [Concomitant]
     Active Substance: REBAMIPIDE
  7. AZOSEMIDE [Concomitant]
     Active Substance: AZOSEMIDE
  8. TOLVAPTAN [Concomitant]
     Active Substance: TOLVAPTAN
  9. SENNOSIDE A+B [Concomitant]
     Active Substance: SENNOSIDES A AND B

REACTIONS (2)
  - Respiratory muscle weakness [Unknown]
  - Right ventricular failure [Fatal]

NARRATIVE: CASE EVENT DATE: 201807
